FAERS Safety Report 23488661 (Version 15)
Quarter: 2024Q3

REPORT INFORMATION
  Report Type: Spontaneous
  Country: AU (occurrence: AU)
  Receive Date: 20240206
  Receipt Date: 20240924
  Transmission Date: 20241016
  Serious: Yes (Hospitalization, Other)
  Sender: MYLAN
  Company Number: AU-MYLANLABS-2024M1011882

PATIENT
  Age: 35 Year
  Sex: Male

DRUGS (37)
  1. CLOZARIL [Suspect]
     Active Substance: CLOZAPINE
     Indication: Schizophrenia
     Dosage: 700 MILLIGRAM
     Route: 048
     Dates: start: 20191002, end: 202403
  2. CLOZARIL [Suspect]
     Active Substance: CLOZAPINE
     Dosage: 250 MILLIGRAM
     Route: 048
     Dates: start: 20240531
  3. CLOZARIL [Suspect]
     Active Substance: CLOZAPINE
     Dosage: 12.5 MILLIGRAM
     Route: 048
     Dates: start: 20240603, end: 20240621
  4. FLUPENTIXOL [Concomitant]
     Active Substance: FLUPENTIXOL
     Dosage: 120 MILLIGRAM, BIWEEKLY (FORTNIGHTLY)
     Route: 065
     Dates: start: 2021
  5. FLUPENTIXOL [Concomitant]
     Active Substance: FLUPENTIXOL
     Dosage: 120 MILLIGRAM, BIWEEKLY (FORTNIGHTLY)
     Route: 065
     Dates: start: 2019
  6. FLUPENTIXOL [Concomitant]
     Active Substance: FLUPENTIXOL
     Dosage: 140 MILLIGRAM (FLUPENTIXOL 140 MG IMI FORTNIGHTLY (INCREASED FROM 120 MG FORTNIGHTLY)
     Route: 065
  7. FLUPENTIXOL [Concomitant]
     Active Substance: FLUPENTIXOL
     Dosage: 200 MILLIGRAM (Q2/52)
     Route: 065
     Dates: end: 20240624
  8. FLUPENTIXOL [Concomitant]
     Active Substance: FLUPENTIXOL
     Dosage: 300 MILLIGRAM, QW (DEPOT)
     Route: 030
     Dates: start: 202409
  9. FLUPENTIXOL [Concomitant]
     Active Substance: FLUPENTIXOL
     Dosage: 160 MILLIGRAM, BIWEEKLY (FLUPENTIXOL DEPOT 160 MG EVERY 2 WEEKS (FURTHER DOSE INCREASE))
     Route: 065
     Dates: start: 202405
  10. FLUPENTIXOL [Concomitant]
     Active Substance: FLUPENTIXOL
     Dosage: 200 MILLIGRAM, QW (WEEKLY)
     Route: 065
     Dates: start: 202406
  11. FLUPENTIXOL [Concomitant]
     Active Substance: FLUPENTIXOL
     Dosage: 150 MILLIGRAM, QW (WEEKLY)
     Route: 065
     Dates: start: 20240708
  12. FLUPENTIXOL [Concomitant]
     Active Substance: FLUPENTIXOL
     Dosage: 200 MILLIGRAM, QW (WEEKLY)
     Route: 065
     Dates: start: 20240722
  13. FLUPENTIXOL [Concomitant]
     Active Substance: FLUPENTIXOL
     Dosage: 240 MILLIGRAM, QW (WEEKLY)
     Route: 065
     Dates: start: 20240806
  14. FLUPENTIXOL [Concomitant]
     Active Substance: FLUPENTIXOL
     Dosage: 300 MILLIGRAM, QW (WEEKLY)
     Route: 065
     Dates: start: 20240822
  15. CHLORPROMAZINE [Concomitant]
     Active Substance: CHLORPROMAZINE
     Dosage: 700 MILLIGRAM
     Route: 065
  16. CHLORPROMAZINE [Concomitant]
     Active Substance: CHLORPROMAZINE
     Dosage: 600 MILLIGRAM, PM (600MG NOCTE)
     Route: 065
  17. CHLORPROMAZINE [Concomitant]
     Active Substance: CHLORPROMAZINE
     Dosage: 300 MILLIGRAM, TID (TDS)
     Route: 065
     Dates: start: 202407
  18. CHLORPROMAZINE [Concomitant]
     Active Substance: CHLORPROMAZINE
     Dosage: 25 MILLIGRAM, BID (BD)
     Route: 065
     Dates: start: 20240326
  19. CHLORPROMAZINE [Concomitant]
     Active Substance: CHLORPROMAZINE
     Dosage: 700 MILLIGRAM, PM (NOCTE)
     Route: 065
     Dates: start: 202405
  20. CHLORPROMAZINE [Concomitant]
     Active Substance: CHLORPROMAZINE
     Dosage: 300 MILLIGRAM, TID (TDS)
     Route: 048
     Dates: start: 202409
  21. ZUCLOPENTHIXOL [Concomitant]
     Active Substance: ZUCLOPENTHIXOL
     Dosage: 400 MILLIGRAM, QW (WEEKLY)
     Route: 065
     Dates: start: 2018
  22. RISPERIDONE [Concomitant]
     Active Substance: RISPERIDONE
     Dosage: 75 MILLIGRAM, BIWEEKLY (FORTNIGHTLY)
     Route: 065
     Dates: start: 2016
  23. OLANZAPINE [Concomitant]
     Active Substance: OLANZAPINE
     Dosage: 10 MILLIGRAM
     Route: 065
  24. OLANZAPINE [Concomitant]
     Active Substance: OLANZAPINE
     Dosage: 30 MILLIGRAM, PM (30MG NOCTE) (COMMENCED 5 MG BD ON 11-MAR-2024. DOSE WAS INCREASED TO 30 MG DAILY O
     Route: 065
  25. OLANZAPINE [Concomitant]
     Active Substance: OLANZAPINE
     Dosage: 10 MILLIGRAM, QD (MANE)
     Route: 048
  26. OLANZAPINE [Concomitant]
     Active Substance: OLANZAPINE
     Dosage: 30 MILLIGRAM, QD (10 MG MANE AND 20 MG NOCTE)
     Route: 048
     Dates: start: 202409
  27. LITHIUM [Concomitant]
     Active Substance: LITHIUM
     Dosage: 450 MILLIGRAM
     Route: 065
  28. LITHIUM [Concomitant]
     Active Substance: LITHIUM
     Dosage: 250 MILLIGRAM, BID (BD)
     Route: 065
  29. LITHIUM [Concomitant]
     Active Substance: LITHIUM
     Dosage: 500 MILLIGRAM, BID (BD; DOSE INCREASED FROM 250 MG BD)
     Route: 065
     Dates: start: 202403
  30. LITHIUM [Concomitant]
     Active Substance: LITHIUM
     Dosage: 450 MILLIGRAM, PM (NOCTE)
     Route: 065
     Dates: start: 202405
  31. FLUVOXAMINE [Concomitant]
     Active Substance: FLUVOXAMINE
     Dosage: 50 MILLIGRAM
     Route: 065
  32. MIANSERIN [Concomitant]
     Active Substance: MIANSERIN
     Dosage: 30 MILLIGRAM, QD (10 MG IN THE MORNING AND 20 MG AT NIGHT)
     Route: 065
     Dates: start: 20240513
  33. AMISULPRIDE [Concomitant]
     Active Substance: AMISULPRIDE
     Dosage: 100 MILLIGRAM, BID (BD)
     Route: 065
     Dates: start: 20240508, end: 20240511
  34. LAMOTRIGINE [Concomitant]
     Active Substance: LAMOTRIGINE
     Dosage: 25 MILLIGRAM, QD (MANE)
     Route: 065
     Dates: start: 20240708
  35. PAROXETINE [Concomitant]
     Active Substance: PAROXETINE
     Dosage: 40 MILLIGRAM, QD (DAILY)
     Route: 065
     Dates: start: 202407
  36. PAROXETINE [Concomitant]
     Active Substance: PAROXETINE
     Dosage: 40 MILLIGRAM, PM (NOCTE)
     Route: 065
     Dates: start: 202409
  37. ALLOPURINOL [Concomitant]
     Active Substance: ALLOPURINOL
     Indication: Schizophrenia
     Dosage: 100 MILLIGRAM (AS AN ADD MEDICATION TO ANTIPSYCHOTIC FOR RESISTANT SCHIZOPHRENIA)
     Route: 065
     Dates: start: 202408

REACTIONS (16)
  - Neutropenia [Recovered/Resolved]
  - Hospitalisation [Not Recovered/Not Resolved]
  - Loss of consciousness [Unknown]
  - Status epilepticus [Unknown]
  - Mental impairment [Unknown]
  - COVID-19 [Recovering/Resolving]
  - Generalised tonic-clonic seizure [Unknown]
  - Leukopenia [Recovered/Resolved]
  - Influenza [Unknown]
  - Hyponatraemia [Unknown]
  - Polydipsia psychogenic [Unknown]
  - Staphylococcus test positive [Unknown]
  - Lymphocyte count decreased [Recovered/Resolved]
  - Eosinophil count decreased [Unknown]
  - Neutrophil count increased [Recovered/Resolved]
  - White blood cell count increased [Recovered/Resolved]

NARRATIVE: CASE EVENT DATE: 20191003
